FAERS Safety Report 24349283 (Version 2)
Quarter: 2024Q3

REPORT INFORMATION
  Report Type: Spontaneous
  Country: US (occurrence: US)
  Receive Date: 20240923
  Receipt Date: 20240924
  Transmission Date: 20241017
  Serious: Yes (Death)
  Sender: JOHNSON AND JOHNSON
  Company Number: US-JNJFOC-20240952294

PATIENT
  Age: 16 Year
  Sex: Female

DRUGS (3)
  1. ACETAMINOPHEN [Suspect]
     Active Substance: ACETAMINOPHEN
     Indication: Product used for unknown indication
     Route: 065
  2. IBUPROFEN [Suspect]
     Active Substance: IBUPROFEN
     Indication: Product used for unknown indication
     Route: 065
  3. ALCOHOL [Suspect]
     Active Substance: ALCOHOL
     Indication: Product used for unknown indication
     Route: 065

REACTIONS (11)
  - Toxicity to various agents [Fatal]
  - Agitation [Fatal]
  - Acute kidney injury [Fatal]
  - Coma [Fatal]
  - Depressed level of consciousness [Fatal]
  - Delirium [Fatal]
  - Hypoglycaemia [Fatal]
  - Hepatotoxicity [Fatal]
  - Hypotension [Fatal]
  - Respiratory depression [Fatal]
  - Brain death [Fatal]
